FAERS Safety Report 8486812 (Version 2)
Quarter: 2012Q4

REPORT INFORMATION
  Report Type: Report from Study
  Country: JP (occurrence: JP)
  Receive Date: 20120402
  Receipt Date: 20121220
  Transmission Date: 20130627
  Serious: Yes (Hospitalization)
  Sender: FDA-Public Use
  Company Number: JP-PFIZER INC-2012076482

PATIENT
  Age: 36 Year
  Sex: Female
  Weight: 55.1 kg

DRUGS (10)
  1. TORISEL [Suspect]
     Indication: RENAL CELL CARCINOMA
     Dosage: 25 mg, weekly
     Route: 042
     Dates: start: 20111021, end: 20111028
  2. RESTAMIN [Concomitant]
     Indication: PROPHYLAXIS
     Dosage: 50 mg, 1x/day, when temsirolimus was administered
     Route: 048
  3. VITAMEDIN CAPSULE [Concomitant]
     Indication: PROPHYLAXIS
     Dosage: 1 DF, 3x/day
     Route: 048
  4. RULID [Concomitant]
     Indication: PROPHYLAXIS
     Dosage: 150 mg, 2x/day
     Route: 048
     Dates: end: 20111107
  5. OPSO [Concomitant]
     Indication: RENAL CELL CARCINOMA
     Dosage: optimal dose, as needed
     Route: 048
  6. OXYCONTIN [Concomitant]
     Indication: RENAL CELL CARCINOMA
     Dosage: 5 mg, 2x/day
     Route: 048
     Dates: end: 20111031
  7. NOVAMIN [Concomitant]
     Indication: PROPHYLAXIS
     Dosage: 5 mg, 3x/day
     Route: 048
     Dates: end: 20111101
  8. MAGNESIUM OXIDE [Concomitant]
     Indication: PROPHYLAXIS
     Dosage: 330 mg, 3x/day
     Route: 048
  9. LAXOBERON [Concomitant]
     Indication: PROPHYLAXIS
     Dosage: optimal dose, as needed
     Route: 048
  10. FENTANYL [Concomitant]
     Indication: RENAL CELL CARCINOMA
     Dosage: 2.1 mg, every three days
     Route: 062
     Dates: start: 20111031, end: 20111101

REACTIONS (1)
  - Hepatic function abnormal [Recovered/Resolved]
